FAERS Safety Report 4983584-4 (Version None)
Quarter: 2006Q2

REPORT INFORMATION
  Report Type: 
  Country: None (occurrence: None)
  Receive Date: 20060426
  Receipt Date: 20060413
  Transmission Date: 20061013
  Serious: Yes (Hospitalization)
  Sender: FDA-Public Use
  Company Number: US-ROCHE-444469

PATIENT
  Age: 65 Year
  Sex: Female

DRUGS (2)
  1. BONIVA [Suspect]
     Indication: OSTEOPOROSIS PROPHYLAXIS
     Route: 048
     Dates: start: 20050615, end: 20060415
  2. LEVOXYL [Concomitant]

REACTIONS (3)
  - CHEST PAIN [None]
  - FAECES DISCOLOURED [None]
  - GASTROOESOPHAGEAL REFLUX DISEASE [None]
